FAERS Safety Report 9238839 (Version 2)
Quarter: 2013Q2

REPORT INFORMATION
  Report Type: Report from Study
  Country: DE (occurrence: DE)
  Receive Date: 20130418
  Receipt Date: 20130430
  Transmission Date: 20140414
  Serious: Yes (Death, Hospitalization, Other)
  Sender: FDA-Public Use
  Company Number: DE-ASTELLAS-2013US003969

PATIENT
  Age: 80 Year
  Sex: Female
  Weight: 66 kg

DRUGS (6)
  1. ERLOTINIB TABLET [Suspect]
     Indication: ADENOCARCINOMA PANCREAS
     Dosage: 100 MG, UID/QD
     Route: 048
     Dates: start: 20130220
  2. GEMCITABINE [Concomitant]
     Indication: ADENOCARCINOMA PANCREAS
     Dosage: UNK
     Route: 042
     Dates: start: 201108, end: 201203
  3. GEMCITABINE [Concomitant]
     Dosage: 1000 MG/M2, CYCLIC
     Route: 065
     Dates: start: 20130219
  4. KEVATRIL [Concomitant]
     Indication: VOMITING
     Dosage: 3 MG, CYCLIC
     Route: 042
     Dates: start: 20130219
  5. FORTECORTIN                        /00016002/ [Concomitant]
     Indication: VOMITING
     Dosage: 12 MG, CYCLIC
     Route: 048
     Dates: start: 20130219
  6. BISOPROLOL [Concomitant]
     Indication: HYPERTENSION
     Dosage: 5 MG, UID/QD
     Route: 048

REACTIONS (4)
  - Anaemia [Unknown]
  - Pyloric stenosis [Recovered/Resolved]
  - General physical health deterioration [Unknown]
  - Malignant neoplasm progression [Fatal]
